FAERS Safety Report 13268590 (Version 1)
Quarter: 2017Q1

REPORT INFORMATION
  Report Type: Report from Study
  Country: US (occurrence: US)
  Receive Date: 20170224
  Receipt Date: 20170224
  Transmission Date: 20170428
  Serious: Yes (Hospitalization)
  Sender: FDA-Public Use
  Company Number: US-BAYER-2016-243588

PATIENT
  Age: 61 Year
  Sex: Male

DRUGS (2)
  1. STIVARGA [Suspect]
     Active Substance: REGORAFENIB
     Indication: GASTROINTESTINAL STROMAL TUMOUR
     Dosage: 160 MG, QD , FOR 21 DAY ON / 7 DAYS OFF
     Route: 048
     Dates: start: 20161212, end: 20161213
  2. STIVARGA [Suspect]
     Active Substance: REGORAFENIB
     Indication: GASTROINTESTINAL STROMAL TUMOUR
     Dosage: 160 MG, QD , EACH MORNING WITH LOW FAT BREAKFAST.
     Route: 048
     Dates: start: 20161218

REACTIONS (10)
  - Oedema peripheral [Not Recovered/Not Resolved]
  - Pain [Recovered/Resolved]
  - Abdominal distension [Not Recovered/Not Resolved]
  - Malaise [Recovered/Resolved]
  - Blood pressure systolic increased [Not Recovered/Not Resolved]
  - Pneumonia [Recovered/Resolved]
  - Drug dose omission [None]
  - Internal haemorrhage [Recovered/Resolved]
  - Nausea [Recovered/Resolved]
  - Pyrexia [Recovered/Resolved]

NARRATIVE: CASE EVENT DATE: 20161214
